FAERS Safety Report 9294827 (Version 1)
Quarter: 2013Q1

REPORT INFORMATION
  Report Type: Spontaneous
  Country: US (occurrence: None)
  Receive Date: 20121227
  Receipt Date: 20121227
  Transmission Date: 20140127
  Serious: Yes (Other)
  Sender: FDA-Public Use
  Company Number: PHEH2012US009176

PATIENT
  Age: 19 Year
  Sex: Female
  Weight: 53 kg

DRUGS (4)
  1. EXJADE (*CGP 72670*) DISPERSIBLE TABLET [Suspect]
     Indication: IRON OVERLOAD
     Dosage: 1000 MG, 5 DAYS PER WEEKS 3 TABLETS DAILY FOR TWO DAYS, ORAL
     Route: 048
     Dates: start: 200703
  2. OXYCODONE (OXYCODONE) [Concomitant]
  3. CELEBREX (CELECOXIB) [Concomitant]
  4. FOLIC ACID (FOLIC ACID) [Concomitant]

REACTIONS (2)
  - Sickle cell anaemia with crisis [None]
  - Back pain [None]
